FAERS Safety Report 8897871 (Version 1)
Quarter: 2012Q4

REPORT INFORMATION
  Report Type: 
  Country: US (occurrence: US)
  Receive Date: 20121109
  Receipt Date: 20121109
  Transmission Date: 20130627
  Serious: Yes (Hospitalization, Other)
  Sender: FDA-Public Use
  Company Number: US-ELI_LILLY_AND_COMPANY-US201210009607

PATIENT
  Age: 56 Year
  Sex: Male
  Weight: 83.9 kg

DRUGS (12)
  1. HUMALOG LISPRO [Suspect]
     Indication: DIABETES MELLITUS
     Dosage: UNK, prn
     Dates: start: 20110402
  2. LANTUS [Concomitant]
     Indication: DIABETES MELLITUS
     Dosage: 45 u, each evening
     Dates: start: 20110405
  3. LANTUS [Concomitant]
     Dosage: 35 u, each evening
  4. TACROLIMUS [Concomitant]
     Indication: PROPHYLAXIS AGAINST TRANSPLANT REJECTION
     Dosage: 1 mg, bid
     Route: 048
     Dates: start: 20110714
  5. ZOCOR [Concomitant]
     Indication: HYPERLIPIDAEMIA
     Dosage: UNK
     Dates: start: 20110403
  6. FLOMAX [Concomitant]
     Dosage: UNK, unknown
  7. OMEPRAZOLE [Concomitant]
     Dosage: UNK
     Dates: start: 20110405
  8. MYFORTIC [Concomitant]
     Dosage: UNK
     Dates: start: 20110823
  9. CALCIUM CARBONATE [Concomitant]
     Dosage: UNK
     Dates: start: 20110405
  10. CELEXA [Concomitant]
     Dosage: UNK
     Dates: start: 20110823
  11. ASPIRIN [Concomitant]
     Dosage: UNK
     Dates: start: 20110405
  12. CARVEDILOL [Concomitant]
     Dosage: 25 mg, UNK

REACTIONS (3)
  - Hypoglycaemia [Recovering/Resolving]
  - Sinus bradycardia [Unknown]
  - Incorrect dose administered [Recovered/Resolved]
